FAERS Safety Report 11779633 (Version 2)
Quarter: 2015Q4

REPORT INFORMATION
  Report Type: Spontaneous
  Country: CZ (occurrence: CZ)
  Receive Date: 20151125
  Receipt Date: 20151230
  Transmission Date: 20160304
  Serious: Yes (Other)
  Sender: FDA-Public Use
  Company Number: CZ-TEVA-611953ISR

PATIENT
  Age: 47 Year
  Sex: Female

DRUGS (3)
  1. 5-FLUOROURACIL [Concomitant]
     Active Substance: FLUOROURACIL
     Indication: RECTAL CANCER METASTATIC
     Dosage: FOLFOX REGIMEN
     Route: 065
     Dates: start: 20130114
  2. FOLINIC ACID [Suspect]
     Active Substance: LEUCOVORIN
     Indication: RECTAL CANCER METASTATIC
     Dosage: FOLFOX REGIMEN
     Route: 065
     Dates: start: 20130114
  3. OXALIPLATIN. [Concomitant]
     Active Substance: OXALIPLATIN
     Indication: RECTAL CANCER METASTATIC
     Dosage: FOLFOX REGIMEN
     Route: 065
     Dates: start: 20130114, end: 2013

REACTIONS (2)
  - Dermatitis acneiform [Unknown]
  - Polyneuropathy [Unknown]

NARRATIVE: CASE EVENT DATE: 201301
